FAERS Safety Report 4631240-4 (Version None)
Quarter: 2005Q2

REPORT INFORMATION
  Report Type: 
  Country: None (occurrence: None)
  Receive Date: 20050408
  Receipt Date: 20050222
  Transmission Date: 20051028
  Serious: Yes (Hospitalization, Disabling, Other)
  Sender: FDA-Public Use
  Company Number: JP-MERCK-0502USA03344

PATIENT
  Age: 69 Year
  Sex: Female

DRUGS (18)
  1. PEPCID RPD [Suspect]
     Indication: GASTRITIS
     Route: 048
     Dates: start: 20040611, end: 20050217
  2. BLOPRESS [Suspect]
     Indication: HYPERTENSION
     Route: 048
     Dates: start: 20041018, end: 20050217
  3. METFORMIN HYDROCHLORIDE [Concomitant]
     Route: 048
     Dates: start: 20040716, end: 20050223
  4. ALDOMET [Concomitant]
     Route: 048
     Dates: start: 20040616
  5. ADALAT [Concomitant]
     Route: 048
     Dates: start: 20040610, end: 20040617
  6. ADALAT [Concomitant]
     Route: 048
     Dates: start: 20040618, end: 20050226
  7. AMLODIN [Concomitant]
     Route: 048
     Dates: start: 20040614, end: 20050224
  8. GLICLAZIDE [Concomitant]
     Route: 048
     Dates: start: 20041108
  9. THYRADIN-S [Concomitant]
     Route: 048
     Dates: start: 20040809
  10. DIOVAN [Concomitant]
     Route: 048
     Dates: start: 20040601, end: 20041018
  11. ZESTRIL [Concomitant]
     Route: 048
     Dates: start: 20040610, end: 20041018
  12. ASPIRIN [Concomitant]
     Route: 048
     Dates: start: 20040611, end: 20040722
  13. LACTIC ACID [Concomitant]
     Route: 048
     Dates: start: 20040618, end: 20041212
  14. [THERAPY UNSPECIFIED] [Concomitant]
     Route: 048
     Dates: start: 20040626, end: 20040630
  15. BROCIN CODEINE [Concomitant]
     Route: 048
     Dates: start: 20040626, end: 20040630
  16. [THERAPY UNSPECIFIED] [Concomitant]
     Route: 048
     Dates: start: 20040626, end: 20040630
  17. MAGNESIUM OXIDE [Concomitant]
     Route: 048
     Dates: start: 20040629, end: 20041212
  18. SENNOSIDES [Concomitant]
     Route: 048
     Dates: start: 20040615, end: 20040701

REACTIONS (2)
  - ALANINE AMINOTRANSFERASE INCREASED [None]
  - INTERSTITIAL LUNG DISEASE [None]
